FAERS Safety Report 20617870 (Version 1)
Quarter: 2022Q1

REPORT INFORMATION
  Report Type: Report from Study
  Country: CA (occurrence: CA)
  Receive Date: 20220321
  Receipt Date: 20220321
  Transmission Date: 20220423
  Serious: Yes (Hospitalization)
  Sender: FDA-Public Use
  Company Number: CA-TEVA-2022-CA-2017964

PATIENT
  Age: 59 Year
  Sex: Female

DRUGS (1)
  1. COPAXONE [Suspect]
     Active Substance: GLATIRAMER ACETATE
     Indication: Multiple sclerosis
     Route: 065
     Dates: start: 19980617, end: 20171016

REACTIONS (8)
  - Immediate post-injection reaction [Unknown]
  - Flushing [Unknown]
  - Feeling hot [Unknown]
  - Muscle contracture [Unknown]
  - Muscular weakness [Unknown]
  - Balance disorder [Unknown]
  - Musculoskeletal stiffness [Unknown]
  - Device breakage [Unknown]

NARRATIVE: CASE EVENT DATE: 20130901
